APPROVED DRUG PRODUCT: NAPHCON-A
Active Ingredient: NAPHAZOLINE HYDROCHLORIDE; PHENIRAMINE MALEATE
Strength: 0.025%;0.3%
Dosage Form/Route: SOLUTION/DROPS;OPHTHALMIC
Application: N020226 | Product #001
Applicant: ALCON LABORATORIES INC
Approved: Jun 8, 1994 | RLD: Yes | RS: Yes | Type: OTC